FAERS Safety Report 6328763-9 (Version None)
Quarter: 2009Q3

REPORT INFORMATION
  Report Type: 
  Country: None (occurrence: None)
  Receive Date: 20090826
  Receipt Date: 20090818
  Transmission Date: 20100115
  Serious: No
  Sender: FDA-Public Use
  Company Number: US-ELI_LILLY_AND_COMPANY-US200907004038

PATIENT
  Sex: Female
  Weight: 52.9 kg

DRUGS (4)
  1. F1J-MC-HMCL PH III/IV DULOXETINE PEDIATR [Suspect]
     Indication: MAJOR DEPRESSION
     Dosage: 30 MG, DAILY (1/D)
     Route: 048
     Dates: start: 20090409, end: 20090702
  2. F1J-MC-HMCL PH III/IV DULOXETINE PEDIATR [Suspect]
     Dosage: 60 MG, DAILY (1/D)
     Route: 048
     Dates: start: 20090703, end: 20090714
  3. F1J-MC-HMCL PH III/IV DULOXETINE PEDIATR [Suspect]
     Dosage: 60 MG, DAILY (1/D)
     Route: 048
     Dates: start: 20090718
  4. BENADRYL [Concomitant]
     Dosage: 20 PILLS, UNK
     Dates: start: 20090714, end: 20090714

REACTIONS (1)
  - INSOMNIA [None]
